FAERS Safety Report 19687625 (Version 2)
Quarter: 2021Q3

REPORT INFORMATION
  Report Type: Spontaneous
  Country: CN (occurrence: CN)
  Receive Date: 20210811
  Receipt Date: 20210820
  Transmission Date: 20211014
  Serious: Yes (Hospitalization, Other)
  Sender: FDA-Public Use
  Company Number: CN-PFIZER INC-202100999929

PATIENT
  Age: 55 Year
  Sex: Female
  Weight: 50 kg

DRUGS (13)
  1. CYTOSAR [Suspect]
     Active Substance: CYTARABINE
     Dosage: 0.15 G, 1X/DAY
     Route: 041
     Dates: start: 20210703, end: 20210705
  2. MERCAPTOPURINE. [Suspect]
     Active Substance: MERCAPTOPURINE
     Dosage: 50 MG, 2X/DAY
     Route: 048
     Dates: start: 20210626, end: 20210702
  3. CYTOSAR [Suspect]
     Active Substance: CYTARABINE
     Indication: ACUTE LYMPHOCYTIC LEUKAEMIA
     Dosage: 0.15 G, 1X/DAY
     Route: 041
     Dates: start: 20210626, end: 20210628
  4. METHOTREXATE. [Suspect]
     Active Substance: METHOTREXATE
     Indication: ACUTE LYMPHOCYTIC LEUKAEMIA
     Dosage: 5 ML, 1X/DAY
     Route: 033
     Dates: start: 20210625, end: 20210625
  5. CYCLOPHOSPHAMIDE. [Suspect]
     Active Substance: CYCLOPHOSPHAMIDE
     Indication: ACUTE LYMPHOCYTIC LEUKAEMIA
     Dosage: 1.12 G, 1X/DAY
     Route: 041
     Dates: start: 20210626, end: 20210626
  6. CYCLOPHOSPHAMIDE. [Suspect]
     Active Substance: CYCLOPHOSPHAMIDE
     Dosage: 1.12 G, 1X/DAY
     Route: 041
     Dates: start: 20210703, end: 20210703
  7. SODIUM CHLORIDE. [Concomitant]
     Active Substance: SODIUM CHLORIDE
     Indication: VEHICLE SOLUTION USE
     Dosage: 100 ML, 1X/DAY
     Route: 041
     Dates: start: 20210603, end: 20210703
  8. SODIUM CHLORIDE. [Concomitant]
     Active Substance: SODIUM CHLORIDE
     Dosage: 100 ML, 1X/DAY
     Route: 041
     Dates: start: 20210703, end: 20210705
  9. SODIUM CHLORIDE. [Concomitant]
     Active Substance: SODIUM CHLORIDE
     Dosage: 100 ML, 1X/DAY
     Route: 041
     Dates: start: 20210626, end: 20210626
  10. SODIUM CHLORIDE. [Concomitant]
     Active Substance: SODIUM CHLORIDE
     Dosage: 10 ML, 1X/DAY
     Route: 033
     Dates: start: 20210625, end: 20210625
  11. SODIUM CHLORIDE. [Concomitant]
     Active Substance: SODIUM CHLORIDE
     Dosage: 100 ML, 1X/DAY
     Route: 041
     Dates: start: 20210626, end: 20210628
  12. CYTOSAR [Suspect]
     Active Substance: CYTARABINE
     Indication: ACUTE LYMPHOCYTIC LEUKAEMIA
     Dosage: 0.5 G, 1X/DAY
     Route: 033
     Dates: start: 20210625, end: 20210625
  13. SODIUM CHLORIDE. [Concomitant]
     Active Substance: SODIUM CHLORIDE
     Dosage: 100 ML, 1X/DAY
     Route: 033
     Dates: start: 20210625, end: 20210625

REACTIONS (2)
  - Full blood count decreased [Recovering/Resolving]
  - Product use issue [Recovered/Resolved]

NARRATIVE: CASE EVENT DATE: 20210625
